FAERS Safety Report 7938010-X (Version None)
Quarter: 2011Q4

REPORT INFORMATION
  Report Type: 
  Country: None (occurrence: None)
  Receive Date: 20111123
  Receipt Date: 20111118
  Transmission Date: 20120403
  Serious: Yes (Other)
  Sender: FDA-Public Use
  Company Number: BR-US-EMD SERONO, INC.-7013986

PATIENT
  Sex: Female

DRUGS (5)
  1. SERTRALINE HYDROCHLORIDE [Concomitant]
  2. NORIPURUM [Concomitant]
     Dates: start: 20100101
  3. ZELMAC [Concomitant]
  4. REBIF [Suspect]
     Indication: RELAPSING-REMITTING MULTIPLE SCLEROSIS
     Route: 058
     Dates: start: 20020415
  5. ZINC [Concomitant]

REACTIONS (8)
  - PARATHYROID CYST [None]
  - URINARY TRACT INFECTION [None]
  - BURSITIS [None]
  - NODULE [None]
  - GINGIVITIS [None]
  - SENSITIVITY OF TEETH [None]
  - BONE LOSS [None]
  - TOOTHACHE [None]
